FAERS Safety Report 5144313-7 (Version None)
Quarter: 2006Q4

REPORT INFORMATION
  Report Type: 
  Country: None (occurrence: None)
  Receive Date: 20061030
  Receipt Date: 20061023
  Transmission Date: 20070319
  Serious: Yes (Death)
  Sender: FDA-Public Use
  Company Number: 163-21880-06101044

PATIENT
  Sex: Male

DRUGS (1)
  1. REVLIMID [Suspect]
     Indication: MULTIPLE MYELOMA
     Dosage: 25 MG, QD 3 WEEKS OUT OF 4 WEEKS, ORAL
     Route: 048
     Dates: start: 20060926

REACTIONS (1)
  - DEATH [None]
